FAERS Safety Report 4493952-5 (Version None)
Quarter: 2004Q4

REPORT INFORMATION
  Report Type: 
  Country: None (occurrence: None)
  Receive Date: 20041105
  Receipt Date: 20040924
  Transmission Date: 20050328
  Serious: Yes (Other)
  Sender: FDA-Public Use
  Company Number: PHBS2004CA12847

PATIENT
  Age: 45 Year
  Sex: Female

DRUGS (5)
  1. ZELNORM [Suspect]
     Indication: IRRITABLE BOWEL SYNDROME
     Dosage: 6 MG/DAY
     Route: 048
     Dates: start: 20040901
  2. METAMUCIL-2 [Suspect]
  3. CLONAZEPAM [Concomitant]
     Dosage: 4 MG/DAY
  4. PAXIL [Concomitant]
     Dosage: 60 MG, BID
  5. ELTROXIN [Concomitant]

REACTIONS (7)
  - ABDOMINAL PAIN [None]
  - BACK PAIN [None]
  - CHEST WALL PAIN [None]
  - CONDITION AGGRAVATED [None]
  - FAECES DISCOLOURED [None]
  - LOOSE STOOLS [None]
  - PAIN [None]
